FAERS Safety Report 22324821 (Version 1)
Quarter: 2023Q2

REPORT INFORMATION
  Report Type: Spontaneous
  Country: US (occurrence: None)
  Receive Date: 20230515
  Receipt Date: 20230515
  Transmission Date: 20230721
  Serious: Yes (Death)
  Sender: FDA-Public Use
  Company Number: None

PATIENT
  Age: 72 Year
  Sex: Male
  Weight: 94.44 kg

DRUGS (17)
  1. DEFERASIROX [Suspect]
     Active Substance: DEFERASIROX
     Indication: Myelodysplastic syndrome
     Dosage: 500MG TWICE DAILY ORAL?
     Route: 048
  2. ASPIRIN [Concomitant]
  3. AZITHROMYCIN [Concomitant]
  4. BACLOFEN [Concomitant]
  5. TUSSIN DM [Concomitant]
  6. CYANOCOBALAMIN [Concomitant]
     Active Substance: CYANOCOBALAMIN
  7. FUROSEMIDE [Concomitant]
  8. GUAIFENESIN ER [Concomitant]
  9. LEVAQUIN [Concomitant]
     Active Substance: LEVOFLOXACIN
  10. LISINOPRIL [Concomitant]
  11. NEUPOGEN [Concomitant]
  12. ONDANSETRON [Concomitant]
  13. PLAVIX [Concomitant]
     Active Substance: CLOPIDOGREL BISULFATE
  14. PYRIDOXINE [Concomitant]
  15. SILDENAFIL CITRATE [Concomitant]
  16. TRAMADOL [Concomitant]
  17. VITAMIN B6 [Concomitant]
     Active Substance: PYRIDOXINE HYDROCHLORIDE

REACTIONS (1)
  - Death [None]
